FAERS Safety Report 25795841 (Version 1)
Quarter: 2025Q3

REPORT INFORMATION
  Report Type: Spontaneous
  Country: US (occurrence: US)
  Receive Date: 20250912
  Receipt Date: 20250912
  Transmission Date: 20251021
  Serious: No
  Sender: Day One Biopharmaceuticals
  Company Number: US-Day One Biopharmaceuticals Inc.-2025US001341

PATIENT

DRUGS (1)
  1. OJEMDA [Suspect]
     Active Substance: TOVORAFENIB
     Indication: Glioma
     Route: 065
     Dates: start: 2025

REACTIONS (1)
  - Amenorrhoea [Not Recovered/Not Resolved]

NARRATIVE: CASE EVENT DATE: 20250101
